FAERS Safety Report 8910921 (Version 3)
Quarter: 2012Q4

REPORT INFORMATION
  Report Type: 
  Country: JP (occurrence: JP)
  Receive Date: 20121115
  Receipt Date: 20121203
  Transmission Date: 20130627
  Serious: Yes (Hospitalization, Other)
  Sender: FDA-Public Use
  Company Number: JP-PFIZER INC-2012284739

PATIENT

DRUGS (2)
  1. NORVASC [Suspect]
     Indication: HYPERTENSION
     Dosage: 5 mg, daily
     Route: 048
     Dates: start: 201111
  2. OLMETEC [Suspect]
     Indication: HYPERTENSION
     Dosage: 20 mg, daily
     Route: 048
     Dates: start: 201111, end: 20121113

REACTIONS (1)
  - Eosinophilic pneumonia [Recovering/Resolving]
